FAERS Safety Report 9620287 (Version 2)
Quarter: 2013Q4

REPORT INFORMATION
  Report Type: Spontaneous
  Country: US (occurrence: US)
  Receive Date: 20131014
  Receipt Date: 20131014
  Transmission Date: 20140711
  Serious: No
  Sender: FDA-Public Use
  Company Number: US-ALLERGAN-1303285US

PATIENT
  Sex: Female

DRUGS (2)
  1. ALPHAGAN P [Suspect]
     Indication: GLAUCOMA
     Dosage: 2 GTT, BID
     Route: 047
     Dates: start: 20130305
  2. LATANOPROST [Concomitant]
     Indication: CATARACT

REACTIONS (3)
  - Fatigue [Recovered/Resolved]
  - Erythema of eyelid [Recovered/Resolved]
  - Asthenia [Recovered/Resolved]
